FAERS Safety Report 9855772 (Version 2)
Quarter: 2014Q2

REPORT INFORMATION
  Report Type: Report from Study
  Country: JP (occurrence: JP)
  Receive Date: 20140130
  Receipt Date: 20140604
  Transmission Date: 20141212
  Serious: Yes (Other)
  Sender: FDA-Public Use
  Company Number: PHHY2014JP009182

PATIENT
  Sex: 0

DRUGS (61)
  1. LEPONEX / CLOZARIL [Suspect]
     Indication: SCHIZOPHRENIA, PARANOID TYPE
     Dosage: 12.5 MG DAILY
     Route: 048
     Dates: start: 20121009, end: 20121009
  2. LEPONEX / CLOZARIL [Suspect]
     Dosage: 25 MG DAILY
     Route: 048
     Dates: start: 20121010, end: 20121012
  3. LEPONEX / CLOZARIL [Suspect]
     Dosage: 50 MG DAILY
     Route: 048
     Dates: start: 20121013, end: 20121015
  4. LEPONEX / CLOZARIL [Suspect]
     Dosage: 75 MG DAILY
     Route: 048
     Dates: start: 20121016, end: 20121018
  5. LEPONEX / CLOZARIL [Suspect]
     Dosage: 100 MG DAILY
     Route: 048
     Dates: start: 20121019, end: 20121020
  6. LEPONEX / CLOZARIL [Suspect]
     Dosage: 125 MG DAILY
     Route: 048
     Dates: start: 20121021, end: 20121023
  7. LEPONEX / CLOZARIL [Suspect]
     Dosage: 150 MG DAILY
     Route: 048
     Dates: start: 20121024, end: 20121026
  8. LEPONEX / CLOZARIL [Suspect]
     Dosage: 175 MG DAILY
     Route: 048
     Dates: start: 20121027, end: 20121030
  9. LEPONEX / CLOZARIL [Suspect]
     Dosage: 200 MG DAILY
     Route: 048
     Dates: start: 20121031, end: 20130115
  10. LEPONEX / CLOZARIL [Suspect]
     Dosage: 250 MG DAILY
     Route: 048
     Dates: start: 20130116, end: 20130123
  11. LEPONEX / CLOZARIL [Suspect]
     Dosage: 300 MG DAILY
     Route: 048
     Dates: start: 20130124, end: 20130208
  12. LEPONEX / CLOZARIL [Suspect]
     Dosage: 325 MG DAILY
     Route: 048
     Dates: start: 20130209, end: 20130215
  13. LEPONEX / CLOZARIL [Suspect]
     Dosage: 350 MG DAILY
     Route: 048
     Dates: start: 20130216, end: 20130222
  14. LEPONEX / CLOZARIL [Suspect]
     Dosage: 375 MG DAILY
     Route: 048
     Dates: start: 20130223, end: 20130301
  15. LEPONEX / CLOZARIL [Suspect]
     Dosage: 400 MG DAILY
     Route: 048
     Dates: start: 20130302, end: 20130308
  16. LEPONEX / CLOZARIL [Suspect]
     Dosage: 425 MG DAILY
     Route: 048
     Dates: start: 20130309, end: 20130315
  17. LEPONEX / CLOZARIL [Suspect]
     Dosage: 450 MG DAILY
     Route: 048
     Dates: start: 20130316, end: 20130322
  18. LEPONEX / CLOZARIL [Suspect]
     Dosage: 475 MG DAILY
     Route: 048
     Dates: start: 20130323, end: 20130327
  19. LEPONEX / CLOZARIL [Suspect]
     Dosage: 450 MG DAILY
     Route: 048
     Dates: start: 20130328, end: 20130405
  20. LEPONEX / CLOZARIL [Suspect]
     Dosage: 425 MG DAILY
     Route: 048
     Dates: start: 20130406, end: 20130410
  21. LEPONEX / CLOZARIL [Suspect]
     Dosage: 400 MG DAILY
     Route: 048
     Dates: start: 20130411, end: 20130419
  22. LEPONEX / CLOZARIL [Suspect]
     Dosage: 375 MG DAILY
     Route: 048
     Dates: start: 20130420, end: 20130423
  23. LEPONEX / CLOZARIL [Suspect]
     Dosage: 300 MG DAILY
     Route: 048
     Dates: start: 20130424, end: 20130426
  24. LEPONEX / CLOZARIL [Suspect]
     Dosage: 275 MG DAILY
     Route: 048
     Dates: start: 20130427, end: 20130503
  25. LEPONEX / CLOZARIL [Suspect]
     Dosage: 250 MG DAILY
     Route: 048
     Dates: start: 20130504, end: 20130510
  26. LEPONEX / CLOZARIL [Suspect]
     Dosage: 200 MG DAILY
     Route: 048
     Dates: start: 20130511
  27. RISPERIDONE [Concomitant]
     Dosage: 5 MG
     Dates: start: 20121014
  28. RISPERIDONE [Concomitant]
     Dosage: 5 MG, UNK
     Dates: end: 20121210
  29. LAMICTAL [Concomitant]
     Indication: SCHIZOPHRENIA, PARANOID TYPE
     Dosage: 100 MG
     Route: 048
     Dates: start: 20121009, end: 20130710
  30. SENNOSIDE [Concomitant]
     Dosage: 24 MG
     Route: 048
     Dates: start: 20121009, end: 20121218
  31. FLUVOXAMINE MALEATE [Concomitant]
     Indication: SCHIZOPHRENIA, PARANOID TYPE
     Dosage: 50 MG
     Route: 048
     Dates: start: 20121009
  32. FLUVOXAMINE MALEATE [Concomitant]
     Dosage: 100 MG
     Route: 048
  33. FLUNITRAZEPAM [Concomitant]
     Indication: SCHIZOPHRENIA, PARANOID TYPE
     Dosage: 2MG
     Route: 048
     Dates: start: 20121009
  34. FLUNITRAZEPAM [Concomitant]
     Dosage: 3 MG
     Route: 048
     Dates: end: 20130710
  35. EBRANTIL [Concomitant]
     Dosage: 30 MG
     Route: 048
     Dates: start: 20121009, end: 20121217
  36. VESICARE [Concomitant]
     Indication: PROPHYLAXIS
     Dosage: 10 MG
     Route: 048
     Dates: start: 20121009
  37. ASPARA [Concomitant]
     Indication: PROPHYLAXIS
     Dosage: 2100 MG
     Route: 048
     Dates: start: 20121009
  38. ASPARA [Concomitant]
     Dosage: 2500 MG
     Route: 048
     Dates: end: 20130606
  39. ASPARA [Concomitant]
     Dosage: 5000 MG
     Route: 048
  40. POLYCARBOPHIL CA [Concomitant]
     Indication: PROPHYLAXIS
     Dosage: 1800 MG
     Route: 048
     Dates: start: 20121009, end: 20130606
  41. BIOFERMIN [Concomitant]
     Indication: PROPHYLAXIS
     Dosage: 3000 MG
     Route: 048
     Dates: start: 20121009, end: 20130606
  42. PICODARM [Concomitant]
     Indication: PROPHYLAXIS
     Dosage: 3000 MG
     Route: 048
     Dates: start: 20121009
  43. PICODARM [Concomitant]
     Dosage: 4500 MG
     Route: 048
  44. PICODARM [Concomitant]
     Dosage: 10000 MG
     Route: 048
  45. PICODARM [Concomitant]
     Dosage: 13000 MG
     Route: 048
  46. PICODARM [Concomitant]
     Dosage: 8500 MG
     Route: 048
  47. PICODARM [Concomitant]
     Dosage: 3000 MG
     Route: 048
  48. AKIRIDEN [Concomitant]
     Dosage: 3 MG
     Route: 048
     Dates: start: 20130110
  49. AKIRIDEN [Concomitant]
     Dosage: 1.5 MG
     Route: 048
  50. AKIRIDEN [Concomitant]
     Dosage: 3 MG
     Route: 048
  51. AKIRIDEN [Concomitant]
     Dosage: 6 MG
     Route: 048
     Dates: end: 20130710
  52. YOKUKANSAN [Concomitant]
     Indication: PROPHYLAXIS
     Dosage: 7.5 MG
     Route: 048
     Dates: start: 20130110, end: 20130606
  53. TRYPTANOL [Concomitant]
     Indication: PROPHYLAXIS
     Dosage: 10 MG
     Route: 048
     Dates: start: 20130129
  54. TRYPTANOL [Concomitant]
     Dosage: 20 MG
     Route: 048
  55. TRYPTANOL [Concomitant]
     Dosage: 25 MG
     Route: 048
  56. LINTON [Concomitant]
     Indication: PROPHYLAXIS
     Dosage: 10 MG
     Dates: start: 20130306
  57. LINTON [Concomitant]
     Dosage: 5 MG
     Dates: end: 20130324
  58. TASMOLIN [Concomitant]
     Indication: PROPHYLAXIS
     Dosage: 2.5 MG
     Dates: start: 20130315, end: 20130324
  59. DOPASTON [Concomitant]
     Dosage: 250 MG
     Route: 048
     Dates: start: 20130410
  60. TRIHEXYPHENIDYL HYDROCHLORID [Concomitant]
     Indication: PROPHYLAXIS
     Dosage: 4 MG
     Route: 048
     Dates: start: 20130412
  61. SHINLUCK [Concomitant]
     Indication: PROPHYLAXIS
     Dosage: 7.5 MG
     Route: 048
     Dates: start: 20130607

REACTIONS (7)
  - Parkinson^s disease [None]
  - Gait disturbance [Not Recovered/Not Resolved]
  - Extrapyramidal disorder [Unknown]
  - Movement disorder [Recovering/Resolving]
  - Muscle rigidity [Unknown]
  - Dysphagia [Recovering/Resolving]
  - Salivary hypersecretion [Recovered/Resolved]
